FAERS Safety Report 13733679 (Version 1)
Quarter: 2017Q3

REPORT INFORMATION
  Report Type: Spontaneous
  Country: US (occurrence: US)
  Receive Date: 20170707
  Receipt Date: 20170707
  Transmission Date: 20171127
  Serious: Yes (Hospitalization, Other)
  Sender: FDA-Public Use
  Company Number: US-MYLANLABS-2017M1040031

PATIENT

DRUGS (1)
  1. EPINEPHRINE. [Suspect]
     Active Substance: EPINEPHRINE
     Indication: ANAPHYLACTIC REACTION
     Dosage: 0.15 MG, ONCE
     Route: 030
     Dates: start: 201605, end: 201605

REACTIONS (2)
  - Pancreatitis acute [Recovered/Resolved]
  - Rotavirus infection [Recovered/Resolved]
